FAERS Safety Report 8398028-2 (Version None)
Quarter: 2012Q2

REPORT INFORMATION
  Report Type: 
  Country: None (occurrence: None)
  Receive Date: 20120531
  Receipt Date: 20120521
  Transmission Date: 20120825
  Serious: Yes (Disabling)
  Sender: FDA-Public Use
  Company Number: DK-PFIZER INC-2012129022

PATIENT
  Sex: Male

DRUGS (10)
  1. SPIRIVA [Concomitant]
     Dosage: UNK
  2. FUROSEMIDE [Concomitant]
     Dosage: UNK
  3. ONBREZ BREEZHALER [Concomitant]
     Dosage: UNK
  4. TEGRETOL [Concomitant]
     Dosage: UNK
  5. SINGULAIR [Concomitant]
     Dosage: UNK
  6. CORDARONE [Suspect]
     Indication: TACHYARRHYTHMIA
     Dosage: UNK
     Route: 048
     Dates: start: 20110101, end: 20111101
  7. DIGOXIN [Concomitant]
     Dosage: UNK
  8. WARFARIN SODIUM [Concomitant]
     Dosage: UNK
  9. LOSARTAN [Concomitant]
     Dosage: UNK
  10. DESLORATADINE [Concomitant]
     Dosage: UNK

REACTIONS (4)
  - POLYNEUROPATHY [None]
  - NEURALGIA [None]
  - NEUROPATHY PERIPHERAL [None]
  - MYXOEDEMA [None]
